FAERS Safety Report 4356202-6 (Version None)
Quarter: 2004Q2

REPORT INFORMATION
  Report Type: 
  Country: None (occurrence: None)
  Receive Date: 20040511
  Receipt Date: 20040422
  Transmission Date: 20050107
  Serious: Yes (Other)
  Sender: FDA-Public Use
  Company Number: 2004UW04045

PATIENT
  Age: 77 Year
  Sex: Female

DRUGS (3)
  1. IRESSA [Suspect]
     Indication: LUNG CANCER METASTATIC
     Dates: start: 20030219, end: 20030407
  2. IRESSA [Suspect]
     Indication: LUNG CANCER METASTATIC
     Dates: start: 20030414, end: 20040120
  3. TAMOXIFEN CITRATE [Concomitant]

REACTIONS (1)
  - RENAL TUBULAR ACIDOSIS [None]
